FAERS Safety Report 23770663 (Version 1)
Quarter: 2024Q2

REPORT INFORMATION
  Report Type: Spontaneous
  Country: RO (occurrence: RO)
  Receive Date: 20240422
  Receipt Date: 20240422
  Transmission Date: 20240716
  Serious: Yes (Other)
  Sender: FDA-Public Use
  Company Number: RO-009507513-2404ROU008371

PATIENT
  Age: 69 Year
  Sex: Male

DRUGS (1)
  1. PEMBROLIZUMAB [Suspect]
     Active Substance: PEMBROLIZUMAB
     Indication: Metastatic malignant melanoma
     Dosage: 200 MILLIGRAM, Q3W
     Dates: start: 20230531, end: 20230802

REACTIONS (16)
  - Shock haemorrhagic [Unknown]
  - Anastomotic ulcer [Unknown]
  - Jejunal ulcer [Unknown]
  - Syncope [Unknown]
  - Malignant neoplasm progression [Recovering/Resolving]
  - Lung disorder [Unknown]
  - Pleural disorder [Unknown]
  - Cortisol abnormal [Recovered/Resolved]
  - Therapy partial responder [Unknown]
  - Blood lactate dehydrogenase abnormal [Recovered/Resolved]
  - Hypotension [Unknown]
  - Abdominal lymphadenopathy [Unknown]
  - Blood thyroid stimulating hormone increased [Recovered/Resolved]
  - Tri-iodothyronine abnormal [Unknown]
  - Anaemia [Unknown]
  - Pyrexia [Unknown]

NARRATIVE: CASE EVENT DATE: 20230801
